FAERS Safety Report 20720470 (Version 2)
Quarter: 2023Q4

REPORT INFORMATION
  Report Type: Spontaneous
  Country: US (occurrence: US)
  Receive Date: 20220418
  Receipt Date: 20231222
  Transmission Date: 20240110
  Serious: No
  Sender: FDA-Public Use
  Company Number: US-PFIZER INC-202200092982

PATIENT
  Age: 73 Year
  Sex: Female

DRUGS (2)
  1. IBRANCE [Suspect]
     Active Substance: PALBOCICLIB
     Indication: Breast cancer female
     Dosage: 125 MG, CYCLIC (TK 1CS FOR 21 DAYS ON AND 7 DAYS OFF IN A 28 DAYS CYCLE)
     Route: 048
     Dates: start: 20211222
  2. IBRANCE [Suspect]
     Active Substance: PALBOCICLIB
     Dosage: 75 MG, CYCLIC ((75 MG TOTAL BY MOUTH DAILY. TAKE DAY 1-21 OUT OF EVERY 28 DAYS)

REACTIONS (2)
  - Pharyngeal swelling [Unknown]
  - Drug intolerance [Unknown]
